FAERS Safety Report 7446971-0 (Version None)
Quarter: 2011Q2

REPORT INFORMATION
  Report Type: 
  Country: None (occurrence: None)
  Receive Date: 20110429
  Receipt Date: 20101029
  Transmission Date: 20111010
  Serious: No
  Sender: FDA-Public Use
  Company Number: US-ASTRAZENECA-2010SE51554

PATIENT
  Age: 48 Year
  Sex: Female
  Weight: 87.5 kg

DRUGS (5)
  1. PRILOSEC [Suspect]
     Indication: GASTROOESOPHAGEAL REFLUX DISEASE
     Route: 048
     Dates: start: 20070101, end: 20070101
  2. SINGULAIR [Concomitant]
     Indication: ASTHMA
  3. NEXIUM [Suspect]
     Indication: GASTROOESOPHAGEAL REFLUX DISEASE
     Route: 048
  4. PROVENTIL [Concomitant]
     Indication: ASTHMA
  5. SIMVASTATIN [Concomitant]

REACTIONS (3)
  - DRUG DOSE OMISSION [None]
  - DYSPEPSIA [None]
  - DRUG INEFFECTIVE [None]
